FAERS Safety Report 17110246 (Version 3)
Quarter: 2021Q3

REPORT INFORMATION
  Report Type: Spontaneous
  Country: FR (occurrence: FR)
  Receive Date: 20191204
  Receipt Date: 20210726
  Transmission Date: 20211014
  Serious: Yes (Hospitalization, Other)
  Sender: FDA-Public Use
  Company Number: FR-VIIV HEALTHCARE LIMITED-FR2019EME211259

PATIENT
  Age: 72 Year
  Sex: Male

DRUGS (4)
  1. IBUPROFENE [Interacting]
     Active Substance: IBUPROFEN
     Indication: PRODUCT USED FOR UNKNOWN INDICATION
     Dosage: UNK
  2. METFORMIN [Interacting]
     Active Substance: METFORMIN HYDROCHLORIDE
     Indication: TYPE 2 DIABETES MELLITUS
     Dosage: 1000 MG, BID (MORNING AND EVENING)
  3. DOLUTEGRAVIR + RILPIVIRINE [Suspect]
     Active Substance: DOLUTEGRAVIR SODIUM\RILPIVIRINE HYDROCHLORIDE
     Indication: HIV INFECTION
     Dosage: 1 DF, 50 MG/25MG DAILY
  4. METFORMIN [Interacting]
     Active Substance: METFORMIN HYDROCHLORIDE
     Dosage: 1000 MG

REACTIONS (7)
  - Drug interaction [Unknown]
  - Vomiting [Unknown]
  - Dehydration [Unknown]
  - Lactic acidosis [Unknown]
  - Glomerular filtration rate decreased [Unknown]
  - Acute kidney injury [Unknown]
  - Abdominal pain [Unknown]
